FAERS Safety Report 8192852-7 (Version None)
Quarter: 2012Q1

REPORT INFORMATION
  Report Type: 
  Country: None (occurrence: None)
  Receive Date: 20120308
  Receipt Date: 20120227
  Transmission Date: 20120608
  Serious: Yes (Other)
  Sender: FDA-Public Use
  Company Number: US-JNJFOC-20120213881

PATIENT
  Sex: Male
  Weight: 56.7 kg

DRUGS (7)
  1. REMICADE [Suspect]
     Indication: RHEUMATOID ARTHRITIS
     Dosage: 1ST DOSE-2 VIALS SOLUTION
     Route: 042
     Dates: start: 20120126
  2. LIALDA [Concomitant]
     Indication: COLITIS ULCERATIVE
     Route: 048
  3. REMICADE [Suspect]
     Dosage: 2ND DOSE
     Route: 042
     Dates: start: 20120209, end: 20120209
  4. BENADRYL [Concomitant]
     Indication: PREMEDICATION
     Route: 065
  5. TYLENOL-500 [Concomitant]
     Indication: PREMEDICATION
     Route: 065
  6. OTHER DRUGS (UNSPECIFIED) [Concomitant]
     Indication: PREMEDICATION
     Route: 065
  7. METOPROLOL SUCCINATE [Concomitant]
     Indication: HYPERTENSION
     Route: 048

REACTIONS (5)
  - RASH [None]
  - HEART RATE IRREGULAR [None]
  - ACNE [None]
  - BLOOD PRESSURE INCREASED [None]
  - HEART RATE DECREASED [None]
